FAERS Safety Report 7741543-2 (Version None)
Quarter: 2011Q3

REPORT INFORMATION
  Report Type: 
  Country: None (occurrence: None)
  Receive Date: 20110909
  Receipt Date: 20110906
  Transmission Date: 20111222
  Serious: Yes (Other)
  Sender: FDA-Public Use
  Company Number: US-GILEAD-2011-0043588

PATIENT
  Sex: Male

DRUGS (3)
  1. VIREAD [Suspect]
     Indication: HIV INFECTION
     Dates: start: 20050101
  2. EMTRIVA [Suspect]
     Indication: HIV INFECTION
     Dates: start: 20050101
  3. LOPINAVIR/RITONAVIR [Concomitant]
     Indication: HIV INFECTION
     Dates: start: 20050101

REACTIONS (6)
  - PROTEINURIA [None]
  - PHOSPHORUS METABOLISM DISORDER [None]
  - NEPHROCALCINOSIS [None]
  - BLOOD CREATININE INCREASED [None]
  - FANCONI SYNDROME ACQUIRED [None]
  - HYPOPHOSPHATAEMIA [None]
